FAERS Safety Report 4319981-X (Version None)
Quarter: 2004Q1

REPORT INFORMATION
  Report Type: 
  Country: None (occurrence: None)
  Receive Date: 20040315
  Receipt Date: 20040108
  Transmission Date: 20041129
  Serious: No
  Sender: FDA-Public Use
  Company Number: 2004193659US

PATIENT
  Age: 53 Year
  Sex: Female

DRUGS (3)
  1. BEXTRA [Suspect]
     Indication: OSTEOARTHRITIS
     Dosage: 20 MG, QD
     Dates: start: 20031208, end: 20040107
  2. CALCIUM [Concomitant]
  3. FOSAMAX [Concomitant]

REACTIONS (6)
  - DYSPEPSIA [None]
  - DYSPNOEA [None]
  - HEADACHE [None]
  - KERATOCONJUNCTIVITIS SICCA [None]
  - NAUSEA [None]
  - POLLAKIURIA [None]
